FAERS Safety Report 17266404 (Version 1)
Quarter: 2019Q4

REPORT INFORMATION
  Report Type: Spontaneous
  Country: US (occurrence: US)
  Receive Date: 20191219
  Receipt Date: 20191219
  Transmission Date: 20200122
  Serious: Yes (Hospitalization)
  Sender: FDA-Public Use
  Company Number: None

PATIENT
  Age: 80 Year
  Sex: Male

DRUGS (8)
  1. VITAMIN D3 [Concomitant]
     Active Substance: CHOLECALCIFEROL
  2. ESBRIET [Suspect]
     Active Substance: PIRFENIDONE
     Indication: IDIOPATHIC PULMONARY FIBROSIS
     Dosage: ?          OTHER DOSE:3 CAPS;?
     Route: 048
     Dates: start: 20160524
  3. DILTIAZEM. [Concomitant]
     Active Substance: DILTIAZEM
  4. ALBUTEROL. [Concomitant]
     Active Substance: ALBUTEROL
  5. ISOSORB MONO [Concomitant]
     Active Substance: ISOSORBIDE MONONITRATE
  6. SELENIUM [Concomitant]
     Active Substance: SELENIUM
  7. ADVAIR DISKU AER [Concomitant]
  8. OMEPRAZOLE. [Concomitant]
     Active Substance: OMEPRAZOLE

REACTIONS (1)
  - Pneumothorax [None]

NARRATIVE: CASE EVENT DATE: 201911
